FAERS Safety Report 7547322-3 (Version None)
Quarter: 2011Q2

REPORT INFORMATION
  Report Type: 
  Country: None (occurrence: None)
  Receive Date: 20110614
  Receipt Date: 20110603
  Transmission Date: 20111010
  Serious: Yes (Hospitalization)
  Sender: FDA-Public Use
  Company Number: IT-NAPPMUNDI-GBR-2011-0008353

PATIENT
  Sex: Female

DRUGS (4)
  1. CORDARONE [Concomitant]
     Dosage: 200 MG, DAILY
  2. VALSARTAN  AND HYDROCHLOROTHIAZIDE [Concomitant]
     Dosage: 92.5 MG, DAILY
  3. OXYCODONE HCL [Suspect]
     Indication: OSTEOARTHRITIS
     Dosage: 20 MG, DAILY
     Route: 048
     Dates: start: 20110515, end: 20110515
  4. ZANEDIP [Concomitant]
     Dosage: 20 MG, DAILY

REACTIONS (3)
  - NAUSEA [None]
  - VOMITING [None]
  - DEPRESSED LEVEL OF CONSCIOUSNESS [None]
